FAERS Safety Report 19379443 (Version 4)
Quarter: 2021Q3

REPORT INFORMATION
  Report Type: Report from Study
  Country: None (occurrence: ES)
  Receive Date: 20210607
  Receipt Date: 20210728
  Transmission Date: 20211014
  Serious: Yes (Hospitalization)
  Sender: FDA-Public Use
  Company Number: ES-ABBVIE-21K-144-3859367-00

PATIENT
  Age: 78 Year
  Sex: Female
  Weight: 43 kg

DRUGS (9)
  1. DUODOPA [Suspect]
     Active Substance: CARBIDOPA\LEVODOPA
     Dosage: CD INCREASED BY 0.1 ML/H, ED 2.4 ML
     Route: 050
     Dates: start: 202105, end: 2021
  2. SINEMET [Concomitant]
     Active Substance: CARBIDOPA\LEVODOPA
     Indication: PRODUCT USED FOR UNKNOWN INDICATION
     Dosage: SINEMET RETARD?1/2 TABLET?NIGHT
     Dates: start: 2021
  3. DUODOPA [Suspect]
     Active Substance: CARBIDOPA\LEVODOPA
     Indication: PARKINSON^S DISEASE
     Route: 050
     Dates: start: 20210407, end: 202104
  4. DUODOPA [Suspect]
     Active Substance: CARBIDOPA\LEVODOPA
     Dosage: CONTINUOUS DOSE INCREASED TO 3.2 ML / H
     Route: 050
     Dates: start: 202104, end: 20210507
  5. LORAZEPAM. [Concomitant]
     Active Substance: LORAZEPAM
     Indication: ANXIETY
     Dosage: 1/2
     Route: 048
     Dates: start: 20210517
  6. DUODOPA [Suspect]
     Active Substance: CARBIDOPA\LEVODOPA
     Dosage: CD INCREASED TO 3.8 ML/H, ED DECREASED TO 2.3 ML AND MD  MAINTAINED
     Route: 050
     Dates: start: 2021
  7. LORAZEPAM. [Concomitant]
     Active Substance: LORAZEPAM
     Indication: NERVOUSNESS
  8. DUODOPA [Suspect]
     Active Substance: CARBIDOPA\LEVODOPA
     Dosage: CONTINUOUS DOSE INCREASED
     Route: 050
     Dates: start: 20210507, end: 202105
  9. DUODOPA [Suspect]
     Active Substance: CARBIDOPA\LEVODOPA
     Dosage: EXTRA DOSE INCREASED TO 2.5 ML
     Route: 050
     Dates: start: 202105, end: 202105

REACTIONS (11)
  - Therapeutic product effect incomplete [Recovered/Resolved]
  - Freezing phenomenon [Not Recovered/Not Resolved]
  - Tremor [Recovered/Resolved]
  - Negativism [Unknown]
  - Parkinson^s disease [Unknown]
  - Tremor [Recovered/Resolved]
  - Weight decreased [Recovered/Resolved]
  - On and off phenomenon [Not Recovered/Not Resolved]
  - On and off phenomenon [Recovered/Resolved]
  - Insomnia [Recovered/Resolved]
  - Hypophagia [Unknown]

NARRATIVE: CASE EVENT DATE: 2021
